FAERS Safety Report 16654161 (Version 1)
Quarter: 2019Q3

REPORT INFORMATION
  Report Type: Spontaneous
  Country: US (occurrence: US)
  Receive Date: 20190731
  Receipt Date: 20190731
  Transmission Date: 20191004
  Serious: No
  Sender: FDA-Public Use
  Company Number: US-SA-2019SA204522

PATIENT
  Age: 19 Year
  Sex: Male

DRUGS (1)
  1. DUPIXENT [Suspect]
     Active Substance: DUPILUMAB
     Indication: ECZEMA
     Dosage: UNK, QOW
     Dates: start: 20190515

REACTIONS (3)
  - Drug ineffective [Unknown]
  - Injection site bruising [Unknown]
  - Eczema [Unknown]

NARRATIVE: CASE EVENT DATE: 20190719
